FAERS Safety Report 17823449 (Version 1)
Quarter: 2020Q2

REPORT INFORMATION
  Report Type: Spontaneous
  Country: US (occurrence: US)
  Receive Date: 20200524
  Receipt Date: 20200524
  Transmission Date: 20200714
  Serious: Yes (Other)
  Sender: FDA-Public Use
  Company Number: None

PATIENT
  Age: 34 Year
  Sex: Female
  Weight: 56.7 kg

DRUGS (14)
  1. NP THYROID [Concomitant]
     Active Substance: LEVOTHYROXINE\LIOTHYRONINE
  2. LEVOTHYROXINE. [Concomitant]
     Active Substance: LEVOTHYROXINE
  3. ZOMIG [Concomitant]
     Active Substance: ZOLMITRIPTAN
  4. COD LIVER OIL [Concomitant]
     Active Substance: COD LIVER OIL
  5. FIBER CAPSULES [Concomitant]
  6. AMERGE [Concomitant]
     Active Substance: NARATRIPTAN HYDROCHLORIDE
  7. EMGALITY [Concomitant]
     Active Substance: GALCANEZUMAB-GNLM
  8. MIDRIN [Concomitant]
     Active Substance: ACETAMINOPHEN\DICHLORALPHENAZONE\ISOMETHEPTENE
  9. NP THYROID [Suspect]
     Active Substance: LEVOTHYROXINE\LIOTHYRONINE
     Indication: HYPOTHYROIDISM
     Dosage: ?          QUANTITY:90 TABLET(S);?
     Route: 048
     Dates: start: 20191205, end: 20200523
  10. CLONAZEPAM. [Concomitant]
     Active Substance: CLONAZEPAM
  11. REGLAN [Concomitant]
     Active Substance: METOCLOPRAMIDE HYDROCHLORIDE
  12. SKELAXIN [Concomitant]
     Active Substance: METAXALONE
  13. LIOTHYRONINE [Concomitant]
     Active Substance: LIOTHYRONINE
  14. FLEXERIL [Concomitant]
     Active Substance: CYCLOBENZAPRINE HYDROCHLORIDE

REACTIONS (5)
  - Tachycardia [None]
  - Syncope [None]
  - Recalled product administered [None]
  - Asthenia [None]
  - Dizziness [None]

NARRATIVE: CASE EVENT DATE: 20200414
